FAERS Safety Report 4932864-7 (Version None)
Quarter: 2006Q1

REPORT INFORMATION
  Report Type: 
  Country: None (occurrence: None)
  Receive Date: 20060301
  Receipt Date: 20060301
  Transmission Date: 20060701
  Serious: Yes (Hospitalization)
  Sender: FDA-Public Use
  Company Number: None

PATIENT
  Age: 26 Year
  Sex: Female
  Weight: 68 kg

DRUGS (3)
  1. ORTHO EVRA [Suspect]
     Indication: CONTRACEPTION
     Dosage: TOPICAL PATCH
     Route: 061
  2. IBUPROFEN [Concomitant]
  3. HYDROCODONE [Concomitant]

REACTIONS (1)
  - DEEP VEIN THROMBOSIS [None]
